FAERS Safety Report 4935496-X (Version None)
Quarter: 2006Q1

REPORT INFORMATION
  Report Type: 
  Country: None (occurrence: None)
  Receive Date: 20060307
  Receipt Date: 20060228
  Transmission Date: 20060701
  Serious: Yes (Hospitalization)
  Sender: FDA-Public Use
  Company Number: MX-GLAXOSMITHKLINE-A0595758A

PATIENT
  Age: 61 Year
  Sex: Female

DRUGS (4)
  1. ZOFRAN [Suspect]
     Indication: VOMITING
     Dosage: 8MG PER DAY
     Route: 042
     Dates: start: 20060216, end: 20060216
  2. ETOPOSIDE [Concomitant]
  3. VINCRISTINE [Concomitant]
  4. CICLOFOSFAMIDA [Concomitant]

REACTIONS (3)
  - BURNING SENSATION [None]
  - ERYTHEMA [None]
  - RASH PAPULAR [None]
